FAERS Safety Report 7022316-5 (Version None)
Quarter: 2010Q3

REPORT INFORMATION
  Report Type: 
  Country: None (occurrence: None)
  Receive Date: 20100928
  Receipt Date: 20100916
  Transmission Date: 20110219
  Serious: Yes (Hospitalization, Other)
  Sender: FDA-Public Use
  Company Number: DSJ-2010-17154

PATIENT
  Age: 74 Year
  Sex: Female

DRUGS (8)
  1. AMLODIPINE BESYLATE AND OLMESARTAN MEDOXOMIL [Suspect]
     Indication: HYPERTENSION
     Dosage: 80/10 MG (2 IN 1 D), PER ORAL
     Route: 048
     Dates: start: 20090101
  2. CARBAMAZEPINE [Concomitant]
  3. CITALOPRAM HYDROBROMIDE [Concomitant]
  4. ACETYLSALICYLIC ACID / ALUMINUM GLYCINATE / MAGNESIUM CARBONATE [Concomitant]
  5. VITAMIN A/VITAMIN C/VITAMIN B/SELENIUM/ZINC [Concomitant]
  6. CLONAZEPAM [Concomitant]
  7. PANTOPRAZOLE SODIUM [Concomitant]
  8. MEDICINE FOR HYPERCHOLESTEROLEMIA (NAME UNKNOWN) [Concomitant]

REACTIONS (7)
  - DECREASED APPETITE [None]
  - DEHYDRATION [None]
  - FALL [None]
  - GASTRITIS [None]
  - HIP FRACTURE [None]
  - OVERDOSE [None]
  - VOMITING [None]
